FAERS Safety Report 6983638-7 (Version None)
Quarter: 2010Q3

REPORT INFORMATION
  Report Type: 
  Country: None (occurrence: None)
  Receive Date: 20100914
  Receipt Date: 20081103
  Transmission Date: 20110219
  Serious: No
  Sender: FDA-Public Use
  Company Number: US-WYE-H06664108

PATIENT
  Age: 44 Year
  Sex: Female
  Weight: 52.21 kg

DRUGS (1)
  1. CHILDREN'S ADVIL [Suspect]
     Indication: NASOPHARYNGITIS
     Dosage: UNKNOWN X 1
     Route: 048
     Dates: start: 20081101, end: 20081101

REACTIONS (1)
  - THROAT IRRITATION [None]
